FAERS Safety Report 11224691 (Version 1)
Quarter: 2015Q2

REPORT INFORMATION
  Report Type: Spontaneous
  Country: RU (occurrence: None)
  Receive Date: 20150625
  Receipt Date: 20150625
  Transmission Date: 20150821
  Serious: Yes (Other)
  Sender: FDA-Public Use
  Company Number: B0987385A

PATIENT
  Sex: Female

DRUGS (6)
  1. LAMIVUDINE HIV (LAMIVUDINE) [Suspect]
     Active Substance: LAMIVUDINE
     Indication: HIV INFECTION
     Dates: start: 2014
  2. REYATAZ [Suspect]
     Active Substance: ATAZANAVIR SULFATE
     Indication: HIV INFECTION
     Dates: start: 2014
  3. STOCRIN (EFAVIRENZ) [Suspect]
     Active Substance: EFAVIRENZ
     Indication: HIV INFECTION
  4. RITONAVIR (RITONAVIR) [Suspect]
     Active Substance: RITONAVIR
     Indication: HIV INFECTION
     Dates: start: 2014
  5. PHOSPHAZIDE (PHOSPHAZIDE) [Suspect]
     Active Substance: PHOSPHAZIDE
     Indication: HIV INFECTION
     Dates: start: 2014
  6. ABACAVIR (ABACAVIR SULPHATE) UNKNOWN [Suspect]
     Active Substance: ABACAVIR
     Indication: HIV INFECTION

REACTIONS (10)
  - Fatigue [None]
  - Lipodystrophy acquired [None]
  - Jaundice [None]
  - Pyrexia [None]
  - Feeling hot [None]
  - Pain [None]
  - Dyspepsia [None]
  - Red blood cell sedimentation rate increased [None]
  - Yawning [None]
  - Anaemia [None]

NARRATIVE: CASE EVENT DATE: 2014
